FAERS Safety Report 13908337 (Version 1)
Quarter: 2017Q3

REPORT INFORMATION
  Report Type: Spontaneous
  Country: US (occurrence: US)
  Receive Date: 20170826
  Receipt Date: 20170826
  Transmission Date: 20171127
  Serious: No
  Sender: FDA-Public Use
  Company Number: US-ENDO PHARMACEUTICALS INC-2016-004706

PATIENT
  Age: 72 Year
  Sex: Female

DRUGS (1)
  1. PREDNISONE TABLETS 5MG [Suspect]
     Active Substance: PREDNISONE
     Indication: PRODUCT USED FOR UNKNOWN INDICATION
     Route: 065

REACTIONS (2)
  - Palpitations [Unknown]
  - Drug intolerance [Unknown]

NARRATIVE: CASE EVENT DATE: 20130531
